FAERS Safety Report 8924824 (Version 1)
Quarter: 2012Q4

REPORT INFORMATION
  Report Type: 
  Country: US (occurrence: US)
  Receive Date: 20121126
  Receipt Date: 20121126
  Transmission Date: 20130627
  Serious: Yes (Hospitalization)
  Sender: FDA-Public Use
  Company Number: US-ELI_LILLY_AND_COMPANY-US201211005807

PATIENT
  Sex: Male

DRUGS (4)
  1. HUMULIN 30% REGULAR, 70% NPH [Suspect]
     Indication: TYPE 1 DIABETES MELLITUS
     Dosage: 50 u, each morning
     Dates: start: 2010
  2. HUMULIN 30% REGULAR, 70% NPH [Suspect]
     Dosage: 20 u, each evening
     Dates: start: 2010
  3. HUMULIN 30% REGULAR, 70% NPH [Suspect]
     Dosage: UNK, prn
     Dates: start: 2010
  4. LASIX [Concomitant]

REACTIONS (5)
  - Stent placement [Unknown]
  - Aortic valve replacement [Unknown]
  - Stent placement [Unknown]
  - Laser therapy [Unknown]
  - Injection site haemorrhage [Unknown]
